FAERS Safety Report 7773371-6 (Version None)
Quarter: 2011Q3

REPORT INFORMATION
  Report Type: 
  Country: None (occurrence: None)
  Receive Date: 20110922
  Receipt Date: 20110909
  Transmission Date: 20111222
  Serious: Yes (Hospitalization)
  Sender: FDA-Public Use
  Company Number: FR-ELI_LILLY_AND_COMPANY-FR201109002307

PATIENT
  Sex: Male

DRUGS (5)
  1. STALEVO 100 [Concomitant]
     Dosage: UNK
     Route: 048
  2. NEBIVOLOL HCL [Concomitant]
     Dosage: 0.5 DF, QD
     Route: 048
  3. CYMBALTA [Suspect]
     Indication: DEPRESSION
     Dosage: 1 DF, QD
     Route: 048
     Dates: start: 20110620, end: 20110715
  4. TRIATEC                                 /FRA/ [Concomitant]
     Dosage: 2.5 MG, QD
  5. KARDEGIC                                /FRA/ [Concomitant]
     Dosage: 75 MG, QD
     Route: 048

REACTIONS (8)
  - DISORIENTATION [None]
  - CONFUSIONAL STATE [None]
  - HALLUCINATION [None]
  - COGWHEEL RIGIDITY [None]
  - SOMNOLENCE [None]
  - PARKINSONIAN GAIT [None]
  - PSYCHOMOTOR HYPERACTIVITY [None]
  - CLUTTERING [None]
